FAERS Safety Report 7207803-9 (Version None)
Quarter: 2011Q1

REPORT INFORMATION
  Report Type: 
  Country: None (occurrence: None)
  Receive Date: 20110104
  Receipt Date: 20101214
  Transmission Date: 20110831
  Serious: Yes (Hospitalization)
  Sender: FDA-Public Use
  Company Number: GB-AMGEN-GBRSP2010004573

PATIENT

DRUGS (4)
  1. LISINOPRIL [Concomitant]
  2. ENBREL [Suspect]
     Indication: PSORIATIC ARTHROPATHY
     Dosage: 50 MG, WEEKLY
     Dates: start: 20081101, end: 20100101
  3. DICLOMAX [Concomitant]
  4. BENDROFLUMETHIAZIDE [Concomitant]

REACTIONS (1)
  - DIABETES MELLITUS [None]
